FAERS Safety Report 8211136-1 (Version None)
Quarter: 2012Q1

REPORT INFORMATION
  Report Type: 
  Country: None (occurrence: None)
  Receive Date: 20120315
  Receipt Date: 20120306
  Transmission Date: 20120608
  Serious: Yes (Hospitalization)
  Sender: FDA-Public Use
  Company Number: IT-SANOFI-AVENTIS-2012SA007629

PATIENT
  Age: 88 Year
  Sex: Female

DRUGS (9)
  1. FUROSEMIDE [Suspect]
     Dosage: 375 MG EVERY SECOND DAY AND 125 MG ONCE DAILY
     Route: 048
     Dates: start: 20110423, end: 20110523
  2. SERTRALINE HYDROCHLORIDE [Suspect]
     Route: 048
     Dates: start: 20110423, end: 20110523
  3. LUVION [Suspect]
     Route: 048
     Dates: start: 20110423, end: 20110523
  4. SPIRIVA [Concomitant]
     Route: 065
  5. CALCIUM CARBONATE/CITRIC ACID [Concomitant]
     Route: 065
  6. CARVEDILOL [Concomitant]
     Route: 065
  7. NITRGLYCERIN TRANSDERMAL SYSTEM [Suspect]
     Route: 065
     Dates: start: 20110423, end: 20110523
  8. ALLOPURINOL [Concomitant]
     Route: 065
  9. ENOXAPARIN SODIUM [Concomitant]
     Route: 065

REACTIONS (7)
  - LETHARGY [None]
  - SOPOR [None]
  - DEHYDRATION [None]
  - DECREASED APPETITE [None]
  - EPISTAXIS [None]
  - OLIGURIA [None]
  - HYPERKALAEMIA [None]
